FAERS Safety Report 5662750-9 (Version None)
Quarter: 2008Q1

REPORT INFORMATION
  Report Type: 
  Country: None (occurrence: None)
  Receive Date: 20080221
  Receipt Date: 20070131
  Transmission Date: 20080703
  Serious: Yes (Other)
  Sender: FDA-Public Use
  Company Number: PHEH2007US01626

PATIENT
  Age: 74 Year
  Sex: Female

DRUGS (1)
  1. DIOVAN [Suspect]
     Dosage: 160 MG, QD, ORAL ; 160 MG QAM, 80 MF Q HS, ORAL
     Route: 048
     Dates: start: 20061201

REACTIONS (1)
  - BLOOD PRESSURE INCREASED [None]
